FAERS Safety Report 7928725-1 (Version None)
Quarter: 2011Q4

REPORT INFORMATION
  Report Type: 
  Country: None (occurrence: None)
  Receive Date: 20111118
  Receipt Date: 20111118
  Transmission Date: 20120403
  Serious: Yes (Life-Threatening)
  Sender: FDA-Public Use
  Company Number: IT-BAYER-2011-111586

PATIENT
  Age: 89 Year
  Sex: Female

DRUGS (3)
  1. LANTANON [Concomitant]
     Dosage: DAILY DOSE 9 GTT
     Route: 048
  2. ASPIRIN [Suspect]
     Indication: MYOCARDIAL ISCHAEMIA
     Dosage: 100 MG, QD
     Route: 048
     Dates: start: 20110101, end: 20111021
  3. LACIREX [Concomitant]
     Dosage: DAILY DOSE 6 MG
     Route: 048

REACTIONS (3)
  - GASTRIC HAEMORRHAGE [None]
  - ANAEMIA [None]
  - SYNCOPE [None]
